FAERS Safety Report 21862761 (Version 10)
Quarter: 2023Q4

REPORT INFORMATION
  Report Type: Report from Study
  Country: US (occurrence: US)
  Receive Date: 20230114
  Receipt Date: 20231010
  Transmission Date: 20240109
  Serious: No
  Sender: FDA-Public Use
  Company Number: US-002147023-NVSC2023US007953

PATIENT
  Age: 71 Year
  Sex: Male

DRUGS (1)
  1. LEQVIO [Suspect]
     Active Substance: INCLISIRAN SODIUM
     Indication: Product used for unknown indication
     Dosage: UNK
     Route: 058
     Dates: start: 20221209

REACTIONS (17)
  - Musculoskeletal discomfort [Unknown]
  - Muscular weakness [Unknown]
  - Arthralgia [Recovered/Resolved]
  - Solar lentigo [Unknown]
  - Rash pruritic [Unknown]
  - Injection site pain [Unknown]
  - Burning sensation [Recovered/Resolved]
  - Joint swelling [Recovered/Resolved]
  - Arthritis [Unknown]
  - Asthenia [Unknown]
  - Blood cholesterol increased [Unknown]
  - Lower respiratory tract infection [Unknown]
  - Peripheral swelling [Recovered/Resolved]
  - Pain in extremity [Recovered/Resolved]
  - Diarrhoea [Unknown]
  - Osteoarthritis [Unknown]
  - Arthralgia [Unknown]

NARRATIVE: CASE EVENT DATE: 20230210
